FAERS Safety Report 15029363 (Version 1)
Quarter: 2018Q2

REPORT INFORMATION
  Report Type: Spontaneous
  Country: FR (occurrence: FR)
  Receive Date: 20180619
  Receipt Date: 20180619
  Transmission Date: 20180711
  Serious: Yes (Other)
  Sender: FDA-Public Use
  Company Number: PHHY2018FR024941

PATIENT
  Age: 28 Year
  Sex: Female

DRUGS (3)
  1. SPIRAMYCINE [Suspect]
     Active Substance: SPIRAMYCIN
     Indication: CHLAMYDIAL INFECTION
     Route: 048
  2. CLARITHROMYCIN. [Suspect]
     Active Substance: CLARITHROMYCIN
     Indication: COUGH
     Route: 065
  3. JOSAMYCINE [Suspect]
     Active Substance: JOSAMYCIN
     Indication: COUGH
     Route: 065

REACTIONS (1)
  - Pancreatitis [Recovered/Resolved]

NARRATIVE: CASE EVENT DATE: 20170223
